FAERS Safety Report 21700843 (Version 1)
Quarter: 2022Q4

REPORT INFORMATION
  Report Type: Spontaneous
  Country: US (occurrence: None)
  Receive Date: 20221207
  Receipt Date: 20221207
  Transmission Date: 20230112
  Serious: Yes (Hospitalization)
  Sender: FDA-Public Use
  Company Number: None

PATIENT
  Age: 86 Year
  Sex: Male
  Weight: 94 kg

DRUGS (1)
  1. OBINUTUZUMAB [Suspect]
     Active Substance: OBINUTUZUMAB
     Dosage: 1000 MG OTHER IV
     Route: 042
     Dates: start: 20221013, end: 20221013

REACTIONS (9)
  - Infusion related reaction [None]
  - Flushing [None]
  - Chills [None]
  - Nausea [None]
  - Vomiting [None]
  - Pancytopenia [None]
  - Hypotension [None]
  - Syncope [None]
  - Cerebral haemorrhage [None]

NARRATIVE: CASE EVENT DATE: 20221013
